FAERS Safety Report 16614853 (Version 2)
Quarter: 2019Q3

REPORT INFORMATION
  Report Type: Spontaneous
  Country: US (occurrence: US)
  Receive Date: 20190723
  Receipt Date: 20190726
  Transmission Date: 20191004
  Serious: No
  Sender: FDA-Public Use
  Company Number: US-PFIZER INC-2019307502

PATIENT
  Age: 10 Year
  Sex: Male

DRUGS (1)
  1. TORISEL [Suspect]
     Active Substance: TEMSIROLIMUS
     Indication: BONE CANCER
     Dosage: 25 MG, UNK

REACTIONS (2)
  - Off label use [Unknown]
  - Product use issue [Unknown]
